FAERS Safety Report 19195418 (Version 4)
Quarter: 2023Q2

REPORT INFORMATION
  Report Type: Report from Study
  Country: CN (occurrence: CN)
  Receive Date: 20210429
  Receipt Date: 20230629
  Transmission Date: 20230722
  Serious: Yes (Hospitalization)
  Sender: FDA-Public Use
  Company Number: NVSC2021CN076354

PATIENT
  Age: 64 Year
  Sex: Female
  Weight: 64.5 kg

DRUGS (16)
  1. KISQALI [Suspect]
     Active Substance: RIBOCICLIB
     Indication: HER2 negative breast cancer
     Dosage: UNK
     Route: 048
     Dates: start: 20190909
  2. LETROZOLE [Suspect]
     Active Substance: LETROZOLE
     Indication: HER2 negative breast cancer
     Dosage: 2.5 MG, DAILY
     Route: 048
     Dates: start: 20190909
  3. FERROUS SULFATE [Concomitant]
     Active Substance: FERROUS SULFATE
     Indication: Haemoglobin decreased
     Dosage: UNK (SUSTAINED-RELEASE)
     Route: 065
     Dates: start: 20210311, end: 20210402
  4. AMBROXOL HYDROCHLORIDE [Concomitant]
     Active Substance: AMBROXOL HYDROCHLORIDE
     Indication: Pneumonia
     Dosage: UNK
     Route: 065
     Dates: start: 20210324, end: 20210324
  5. CEFEPIME HYDROCHLORIDE [Concomitant]
     Active Substance: CEFEPIME HYDROCHLORIDE
     Indication: Pyrexia
     Dosage: UNK
     Route: 065
     Dates: start: 20210324, end: 20210324
  6. CEFEPIME HYDROCHLORIDE [Concomitant]
     Active Substance: CEFEPIME HYDROCHLORIDE
     Indication: Pneumonia
     Dosage: UNK
     Route: 065
     Dates: start: 20210331, end: 20210401
  7. CEFIXIME [Concomitant]
     Active Substance: CEFIXIME
     Indication: Pneumonia
     Dosage: UNK
     Route: 065
     Dates: start: 20210324, end: 20210328
  8. PARACETAMOL, AMINOPHENAZONE, CAFFEINE AND CHL [Concomitant]
     Indication: Pyrexia
     Dosage: UNK
     Route: 065
     Dates: start: 20210324, end: 20210328
  9. PARACETAMOL, AMINOPHENAZONE, CAFFEINE AND CHL [Concomitant]
     Dosage: UNK
     Route: 065
     Dates: start: 20210330, end: 20210331
  10. ASCORBIC ACID [Concomitant]
     Active Substance: ASCORBIC ACID
     Indication: Pyrexia
     Dosage: UNK
     Route: 065
     Dates: start: 20210324, end: 20210324
  11. ASCORBIC ACID [Concomitant]
     Active Substance: ASCORBIC ACID
     Dosage: UNK
     Route: 065
     Dates: start: 20210331, end: 20210331
  12. CEFACLOR [Concomitant]
     Active Substance: CEFACLOR
     Indication: Pyrexia
     Dosage: UNK
     Route: 065
     Dates: start: 20210330, end: 20210330
  13. BARBITAL-AMINOPHENAZONE COMPLEX [Concomitant]
     Indication: Pyrexia
     Dosage: UNK
     Route: 065
     Dates: start: 20210331, end: 20210331
  14. DOXOFYLLINE [Concomitant]
     Active Substance: DOXOFYLLINE
     Indication: Pyrexia
     Dosage: UNK
     Route: 065
     Dates: start: 20210331, end: 20210331
  15. ESOMEPRAZOLE SODIUM [Concomitant]
     Active Substance: ESOMEPRAZOLE SODIUM
     Indication: Pyrexia
     Dosage: UNK
     Route: 065
     Dates: start: 20210331, end: 20210331
  16. VITAMIN B6 [Concomitant]
     Active Substance: PYRIDOXINE HYDROCHLORIDE
     Indication: Pyrexia
     Dosage: UNK
     Route: 065
     Dates: start: 20210331, end: 20210331

REACTIONS (1)
  - Pneumonia [Recovered/Resolved]

NARRATIVE: CASE EVENT DATE: 20210401
